FAERS Safety Report 10055563 (Version 2)
Quarter: 2014Q2

REPORT INFORMATION
  Report Type: Other
  Country: CO (occurrence: CO)
  Receive Date: 20140403
  Receipt Date: 20140403
  Transmission Date: 20141212
  Serious: Yes (Hospitalization)
  Sender: FDA-Public Use
  Company Number: CO-SHIRE-CO201400050

PATIENT
  Age: 12 Year
  Sex: Male
  Weight: 24 kg

DRUGS (2)
  1. ELAPRASE [Suspect]
     Indication: MUCOPOLYSACCHARIDOSIS II
     Dosage: 18 MG, 1X/WEEK
     Route: 041
     Dates: start: 20131031
  2. ELAPRASE [Suspect]
     Dosage: 12 MG, 1X/WEEK
     Route: 041
     Dates: start: 20130718

REACTIONS (6)
  - Hydrocephalus [Recovering/Resolving]
  - Convulsion [Recovered/Resolved]
  - Somnolence [Recovered/Resolved]
  - Decreased appetite [Recovered/Resolved]
  - Infusion related reaction [Recovered/Resolved]
  - Pyrexia [Recovered/Resolved]
